FAERS Safety Report 9116785 (Version 1)
Quarter: 2013Q1

REPORT INFORMATION
  Report Type: Report from Study
  Country: LB (occurrence: LB)
  Receive Date: 20130225
  Receipt Date: 20130225
  Transmission Date: 20140127
  Serious: Yes (Hospitalization)
  Sender: FDA-Public Use
  Company Number: LB-SANOFI-AVENTIS-2013SA017217

PATIENT
  Age: 47 Year
  Sex: Male

DRUGS (9)
  1. LANTUS SOLOSTAR [Suspect]
     Indication: DIABETES MELLITUS
     Dosage: DOSE:25 UNIT(S)
     Route: 058
     Dates: start: 201301
  2. SOLOSTAR [Suspect]
     Indication: DEVICE THERAPY
     Dates: start: 201301
  3. AMARYL [Suspect]
     Indication: DIABETES MELLITUS
     Route: 048
  4. CEFTRIAXONE [Concomitant]
     Route: 048
  5. KREON [Concomitant]
     Route: 048
  6. OMEPRAZOLE [Concomitant]
     Route: 048
  7. CORDARONE [Concomitant]
     Route: 048
  8. MICARDIS [Concomitant]
     Indication: HYPERTENSION
     Route: 048
  9. CIPRODAR [Concomitant]
     Route: 048

REACTIONS (1)
  - Pancreatic mass [Not Recovered/Not Resolved]
